FAERS Safety Report 18789481 (Version 2)
Quarter: 2021Q1

REPORT INFORMATION
  Report Type: Report from Study
  Country: CO (occurrence: CO)
  Receive Date: 20210126
  Receipt Date: 20210219
  Transmission Date: 20210419
  Serious: Yes (Hospitalization, Other)
  Sender: FDA-Public Use
  Company Number: CO-TAKEDA-CO202008412

PATIENT
  Age: 40 Year
  Sex: Male
  Weight: 62 kg

DRUGS (15)
  1. ICATIBANT [Suspect]
     Active Substance: ICATIBANT ACETATE
     Dosage: 30MG/3ML, MAXIMUM 3 SYRINGES IN 24 HOURS
     Route: 058
     Dates: start: 20141125
  2. ICATIBANT [Suspect]
     Active Substance: ICATIBANT ACETATE
     Indication: HEREDITARY ANGIOEDEMA
     Dosage: 30MG/3ML, MAXIMUM 3 SYRINGES IN 24 HOURS
     Route: 058
     Dates: start: 20141125
  3. ICATIBANT [Suspect]
     Active Substance: ICATIBANT ACETATE
     Dosage: 30MH/3ML, EVERY 6 HOURS
     Route: 058
     Dates: start: 20200818
  4. ICATIBANT [Suspect]
     Active Substance: ICATIBANT ACETATE
     Dosage: 30MH/3ML, EVERY 6 HOURS
     Route: 058
     Dates: start: 20200818
  5. ICATIBANT [Suspect]
     Active Substance: ICATIBANT ACETATE
     Dosage: 30MG/3ML, MAXIMUM 3 SYRINGES IN 24 HOURS
     Route: 058
     Dates: start: 20141125
  6. ICATIBANT [Suspect]
     Active Substance: ICATIBANT ACETATE
     Dosage: 30MH/3ML, EVERY 6 HOURS
     Route: 058
     Dates: start: 20200703
  7. ICATIBANT [Suspect]
     Active Substance: ICATIBANT ACETATE
     Dosage: 30MG/3ML, MAXIMUM 3 SYRINGES IN 24 HOURS
     Route: 058
     Dates: start: 20200911
  8. ICATIBANT [Suspect]
     Active Substance: ICATIBANT ACETATE
     Dosage: 30MG/3ML, MAXIMUM 3 SYRINGES IN 24 HOURS
     Route: 058
     Dates: start: 20200914
  9. ICATIBANT [Suspect]
     Active Substance: ICATIBANT ACETATE
     Dosage: 30MG/3ML, MAXIMUM 3 SYRINGES IN 24 HOURS
     Route: 058
     Dates: start: 20200914, end: 20200915
  10. ICATIBANT [Suspect]
     Active Substance: ICATIBANT ACETATE
     Indication: HEREDITARY ANGIOEDEMA
     Dosage: 30MG/3ML, MAXIMUM 3 SYRINGES IN 24 HOURS
     Route: 058
     Dates: start: 20141125
  11. ICATIBANT [Suspect]
     Active Substance: ICATIBANT ACETATE
     Dosage: 30MG/3ML, MAXIMUM 3 SYRINGES IN 24 HOURS
     Route: 058
     Dates: start: 20200914
  12. ICATIBANT [Suspect]
     Active Substance: ICATIBANT ACETATE
     Dosage: 30MG/3ML, MAXIMUM 3 SYRINGES IN 24 HOURS
     Route: 058
     Dates: start: 20200911
  13. ICATIBANT [Suspect]
     Active Substance: ICATIBANT ACETATE
     Dosage: 30MG/3ML, MAXIMUM 3 SYRINGES IN 24 HOURS
     Route: 058
     Dates: start: 20200914, end: 20200915
  14. ICATIBANT [Suspect]
     Active Substance: ICATIBANT ACETATE
     Dosage: 30MH/3ML, EVERY 6 HOURS
     Route: 058
     Dates: start: 20200703
  15. MULTIVITAMINS [VITAMINS NOS] [Concomitant]
     Active Substance: VITAMINS
     Route: 065

REACTIONS (5)
  - Hereditary angioedema [Recovering/Resolving]
  - Weight increased [Unknown]
  - SARS-CoV-2 test positive [Not Recovered/Not Resolved]
  - Pneumonia [Recovering/Resolving]
  - Weight decreased [Unknown]

NARRATIVE: CASE EVENT DATE: 20200609
